FAERS Safety Report 19940808 (Version 1)
Quarter: 2021Q4

REPORT INFORMATION
  Report Type: Spontaneous
  Country: IN (occurrence: IN)
  Receive Date: 20211011
  Receipt Date: 20211011
  Transmission Date: 20220304
  Serious: Yes (Hospitalization)
  Sender: FDA-Public Use
  Company Number: IN-PHARMGEN-2021PGLIT00006

PATIENT
  Age: 65 Year
  Sex: Female
  Weight: 73 kg

DRUGS (5)
  1. BETAMETHASONE DIPROPIONATE [Suspect]
     Active Substance: BETAMETHASONE DIPROPIONATE
     Indication: Dyspnoea
     Route: 065
  2. CALCIUM [Interacting]
     Active Substance: CALCIUM
     Indication: Product used for unknown indication
  3. AMLODIPINE BESYLATE [Interacting]
     Active Substance: AMLODIPINE BESYLATE
     Indication: Product used for unknown indication
     Route: 065
  4. LEVOTHYROXINE [Interacting]
     Active Substance: LEVOTHYROXINE
     Dosage: 25 MICRO GRAM
     Route: 065
  5. CHOLECALCIFEROL [Interacting]
     Active Substance: CHOLECALCIFEROL
     Indication: Product used for unknown indication
     Route: 065

REACTIONS (10)
  - Self-medication [Recovered/Resolved]
  - Hypothyroidism [Recovered/Resolved]
  - Cushing^s syndrome [Recovered/Resolved]
  - Lipohypertrophy [Recovered/Resolved]
  - Hypothalamic pituitary adrenal axis suppression [Recovered/Resolved]
  - Oedema peripheral [Recovered/Resolved]
  - Swelling face [Recovered/Resolved]
  - Osteopenia [Recovered/Resolved]
  - Lymphopenia [Recovered/Resolved]
  - Hypertension [Recovered/Resolved]
